FAERS Safety Report 11927268 (Version 1)
Quarter: 2016Q1

REPORT INFORMATION
  Report Type: Spontaneous
  Country: US (occurrence: None)
  Receive Date: 20160115
  Receipt Date: 20160115
  Transmission Date: 20160526
  Serious: Yes (Hospitalization, Disabling)
  Sender: FDA-Public Use
  Company Number: None

PATIENT
  Age: 42 Year
  Sex: Female
  Weight: 86.18 kg

DRUGS (7)
  1. NORTREL [Suspect]
     Active Substance: ETHINYL ESTRADIOL\NORETHINDRONE
     Indication: MENSTRUATION IRREGULAR
     Dosage: 1 PILL ONCE DAILY TAKEN BY MOUTH
     Route: 048
     Dates: start: 20150825, end: 20151213
  2. LISINOPRIL. [Concomitant]
     Active Substance: LISINOPRIL
  3. MEGESTROL [Concomitant]
     Active Substance: MEGESTROL
  4. ATORVASTATIN [Concomitant]
     Active Substance: ATORVASTATIN
  5. BRILLENTIA [Concomitant]
  6. ASPIRIN. [Concomitant]
     Active Substance: ASPIRIN
  7. CARVEDILOL. [Concomitant]
     Active Substance: CARVEDILOL

REACTIONS (3)
  - Thrombosis [None]
  - Intracardiac thrombus [None]
  - Myocardial infarction [None]

NARRATIVE: CASE EVENT DATE: 20151213
